FAERS Safety Report 10607322 (Version 1)
Quarter: 2014Q4

REPORT INFORMATION
  Report Type: Spontaneous
  Country: US (occurrence: US)
  Receive Date: 20141125
  Receipt Date: 20141125
  Transmission Date: 20150529
  Serious: Yes (Other)
  Sender: FDA-Public Use
  Company Number: US-SHIRE-US201407806

PATIENT
  Age: 36 Year
  Sex: Female

DRUGS (3)
  1. HUMIRA [Suspect]
     Active Substance: ADALIMUMAB
     Dosage: UNK, OTHER (EVERY 10 DAYS)
     Route: 058
     Dates: start: 201406, end: 20141020
  2. PENTASA [Suspect]
     Active Substance: MESALAMINE
     Indication: PRODUCT USED FOR UNKNOWN INDICATION
     Dosage: UNK, UNKNOWN
     Route: 048
     Dates: start: 2011
  3. HUMIRA [Suspect]
     Active Substance: ADALIMUMAB
     Indication: CROHN^S DISEASE
     Dosage: UNK, UNKNOWN
     Route: 058
     Dates: start: 2011, end: 201406

REACTIONS (3)
  - Anxiety [Unknown]
  - Alopecia [Unknown]
  - Depression [Unknown]

NARRATIVE: CASE EVENT DATE: 20140429
